APPROVED DRUG PRODUCT: PROMETHAZINE HYDROCHLORIDE
Active Ingredient: PROMETHAZINE HYDROCHLORIDE
Strength: 25MG
Dosage Form/Route: TABLET;ORAL
Application: A089109 | Product #001
Applicant: TEVA PHARMACEUTICALS USA INC
Approved: Sep 10, 1985 | RLD: No | RS: No | Type: DISCN